FAERS Safety Report 4661079-5 (Version None)
Quarter: 2005Q2

REPORT INFORMATION
  Report Type: 
  Country: None (occurrence: None)
  Receive Date: 20050511
  Receipt Date: 20050506
  Transmission Date: 20051028
  Serious: Yes (Death)
  Sender: FDA-Public Use
  Company Number: THQ2005A00401

PATIENT
  Age: 74 Year

DRUGS (1)
  1. LEUPROLIDE ACETATE [Suspect]
     Dosage: (1 IN 3 M)
     Dates: start: 20040407, end: 20041221

REACTIONS (7)
  - CERVICAL VERTEBRAL FRACTURE [None]
  - DISLOCATION OF VERTEBRA [None]
  - FALL [None]
  - GRIP STRENGTH DECREASED [None]
  - LOBAR PNEUMONIA [None]
  - PARAPLEGIA [None]
  - RESPIRATORY FAILURE [None]
